FAERS Safety Report 7634485-4 (Version None)
Quarter: 2011Q3

REPORT INFORMATION
  Report Type: 
  Country: None (occurrence: None)
  Receive Date: 20110725
  Receipt Date: 20110715
  Transmission Date: 20111222
  Serious: Yes (Other)
  Sender: FDA-Public Use
  Company Number: US-MYLANLABS-2011S1014734

PATIENT
  Age: 65 Year
  Sex: Male

DRUGS (5)
  1. ASCORBIC ACID [Concomitant]
  2. AMLODIPINE [Concomitant]
     Indication: ATRIAL FIBRILLATION
  3. BENAZEPRIL HYDROCHLORIDE [Concomitant]
     Indication: ATRIAL FIBRILLATION
  4. ASPIRIN [Concomitant]
  5. SPIRONOLACTONE [Suspect]
     Indication: HYPOKALAEMIA
     Route: 048
     Dates: start: 20110118

REACTIONS (1)
  - NON-HODGKIN'S LYMPHOMA [None]
